FAERS Safety Report 6869775-6 (Version None)
Quarter: 2010Q3

REPORT INFORMATION
  Report Type: 
  Country: None (occurrence: None)
  Receive Date: 20100721
  Receipt Date: 20100712
  Transmission Date: 20110219
  Serious: No
  Sender: FDA-Public Use
  Company Number: 2010EU002268

PATIENT
  Age: 56 Year
  Sex: Female
  Weight: 59 kg

DRUGS (1)
  1. VESICARE [Suspect]
     Indication: MICTURITION URGENCY
     Dosage: 5 MG, UNKNOWN/D, ORAL
     Route: 048
     Dates: start: 20100105, end: 20100119

REACTIONS (2)
  - LOCALISED OEDEMA [None]
  - OEDEMA PERIPHERAL [None]
